FAERS Safety Report 8290106-1 (Version None)
Quarter: 2012Q2

REPORT INFORMATION
  Report Type: 
  Country: None (occurrence: None)
  Receive Date: 20120412
  Receipt Date: 20120412
  Transmission Date: 20120825
  Serious: No
  Sender: FDA-Public Use
  Company Number: None

PATIENT
  Sex: Male
  Weight: 110 kg

DRUGS (3)
  1. ELOXATIN [Suspect]
     Dosage: 198.05 MG
  2. FLUOROURACIL [Suspect]
     Dosage: 6524 MG, 5FU PUSH 932 MG, 5FU CADD INFUSION, 5592 MG OVER 46 HOURS
  3. LEUCOVORIN CALCIUM [Suspect]
     Dosage: 932 MG

REACTIONS (1)
  - DIARRHOEA [None]
